FAERS Safety Report 9247419 (Version 1)
Quarter: 2013Q2

REPORT INFORMATION
  Report Type: Spontaneous
  Country: US (occurrence: US)
  Receive Date: 20130423
  Receipt Date: 20130423
  Transmission Date: 20140414
  Serious: Yes (Other)
  Sender: FDA-Public Use
  Company Number: US-SANOFI-AVENTIS-2013SA040605

PATIENT
  Age: 71 Year
  Sex: Female

DRUGS (2)
  1. LANTUS SOLOSTAR [Suspect]
     Indication: TYPE 2 DIABETES MELLITUS
     Dosage: PRODUCT START FROM 2-3 YEARS AGO DOSE:27 UNIT(S)
     Route: 051
  2. SOLOSTAR [Suspect]
     Indication: TYPE 2 DIABETES MELLITUS
     Dosage: PRODUCT START FROM 2-3 YEARS AGO

REACTIONS (4)
  - Ocular hyperaemia [Unknown]
  - Intraocular pressure test abnormal [Unknown]
  - Scar [Recovered/Resolved]
  - Glycosylated haemoglobin increased [Unknown]
